FAERS Safety Report 5191653-1 (Version None)
Quarter: 2006Q4

REPORT INFORMATION
  Report Type: 
  Country: None (occurrence: None)
  Receive Date: 20061219
  Receipt Date: 20061206
  Transmission Date: 20070319
  Serious: Yes (Hospitalization)
  Sender: FDA-Public Use
  Company Number: 2006152094

PATIENT
  Sex: Female

DRUGS (1)
  1. PROVERA [Suspect]

REACTIONS (1)
  - SPINAL FRACTURE [None]
